FAERS Safety Report 23520026 (Version 3)
Quarter: 2024Q3

REPORT INFORMATION
  Report Type: Report from Study
  Country: CA (occurrence: CA)
  Receive Date: 20240214
  Receipt Date: 20240924
  Transmission Date: 20241017
  Serious: Yes (Other)
  Sender: TAKEDA
  Company Number: CA-TAKEDA-2022TUS030142

PATIENT
  Age: 56 Year
  Sex: Male

DRUGS (6)
  1. VEDOLIZUMAB [Suspect]
     Active Substance: VEDOLIZUMAB
     Indication: Colitis ulcerative
     Dosage: 300 MILLIGRAM
     Route: 042
     Dates: start: 20210114
  2. VEDOLIZUMAB [Suspect]
     Active Substance: VEDOLIZUMAB
     Dosage: 300 MILLIGRAM
     Route: 042
  3. VEDOLIZUMAB [Suspect]
     Active Substance: VEDOLIZUMAB
     Dosage: 300 MILLIGRAM, Q4WEEKS
     Route: 042
     Dates: start: 20231214
  4. VEDOLIZUMAB [Suspect]
     Active Substance: VEDOLIZUMAB
     Dosage: 300 MILLIGRAM, Q4WEEKS
     Route: 042
  5. VEDOLIZUMAB [Suspect]
     Active Substance: VEDOLIZUMAB
     Dosage: 300 MILLIGRAM, Q4WEEKS
     Route: 042
     Dates: end: 20240918
  6. CORTISONE [Concomitant]
     Active Substance: CORTISONE
     Dosage: UNK UNK, QD
     Dates: start: 1992

REACTIONS (7)
  - Anal fistula [Recovering/Resolving]
  - Faeces soft [Not Recovered/Not Resolved]
  - Drug ineffective [Not Recovered/Not Resolved]
  - Product dose omission issue [Unknown]
  - Off label use [Unknown]
  - Fistula inflammation [Unknown]
  - Fistula discharge [Unknown]

NARRATIVE: CASE EVENT DATE: 20231214
